FAERS Safety Report 21409732 (Version 2)
Quarter: 2023Q1

REPORT INFORMATION
  Report Type: Report from Study
  Country: US (occurrence: US)
  Receive Date: 20221005
  Receipt Date: 20230315
  Transmission Date: 20230417
  Serious: Yes (Other)
  Sender: FDA-Public Use
  Company Number: US-ABBVIE-4140354

PATIENT
  Age: 61 Year
  Sex: Female

DRUGS (1)
  1. SKYRIZI [Suspect]
     Active Substance: RISANKIZUMAB-RZAA
     Indication: Psoriasis
     Route: 058
     Dates: start: 20220729

REACTIONS (7)
  - Cardiac failure congestive [Recovering/Resolving]
  - Back pain [Recovering/Resolving]
  - Emphysema [Recovering/Resolving]
  - Arthralgia [Recovering/Resolving]
  - Chronic obstructive pulmonary disease [Recovering/Resolving]
  - Arthralgia [Recovering/Resolving]
  - Arthralgia [Recovered/Resolved]

NARRATIVE: CASE EVENT DATE: 20220915
